FAERS Safety Report 5606910-1 (Version None)
Quarter: 2008Q1

REPORT INFORMATION
  Report Type: 
  Country: None (occurrence: None)
  Receive Date: 20080129
  Receipt Date: 20080114
  Transmission Date: 20080703
  Serious: Yes (Other)
  Sender: FDA-Public Use
  Company Number: CR-GENENTECH-254942

PATIENT
  Age: 43 Year
  Sex: Male

DRUGS (1)
  1. AVASTIN [Suspect]
     Indication: RETINAL DETACHMENT
     Dosage: 1.25 MG, UNK
     Route: 031

REACTIONS (1)
  - MYOCARDIAL INFARCTION [None]
